FAERS Safety Report 18606766 (Version 5)
Quarter: 2021Q1

REPORT INFORMATION
  Report Type: Report from Study
  Country: TW (occurrence: TW)
  Receive Date: 20201211
  Receipt Date: 20210205
  Transmission Date: 20210419
  Serious: Yes (Hospitalization)
  Sender: FDA-Public Use
  Company Number: NVSC2020TW325522

PATIENT
  Age: 67 Year
  Sex: Female
  Weight: 56.5 kg

DRUGS (11)
  1. CAPMATINIB [Suspect]
     Active Substance: CAPMATINIB
     Indication: NON-SMALL CELL LUNG CANCER
     Dosage: 400 MG, BID
     Route: 048
     Dates: start: 20201125, end: 20201204
  2. DEXTROMETHORPHAN [Concomitant]
     Active Substance: DEXTROMETHORPHAN
     Indication: COUGH
     Dosage: UNK
     Route: 065
     Dates: start: 20201125, end: 20201216
  3. BROMELAIN [Concomitant]
     Active Substance: BROMELAINS
     Indication: COUGH
     Dosage: UNK
     Route: 065
     Dates: start: 20201125
  4. PEMBROLIZUMAB. [Suspect]
     Active Substance: PEMBROLIZUMAB
     Indication: NON-SMALL CELL LUNG CANCER
     Dosage: 200 MG, Q3W
     Route: 042
     Dates: start: 20201125
  5. CHOLINE [Concomitant]
     Active Substance: CHOLINE
     Indication: COUGH
     Dosage: UNK
     Route: 065
     Dates: start: 20201205, end: 20201213
  6. PROTHROMBIN COMPLEX CONCENTRATE NOS [Concomitant]
     Active Substance: COAGULATION FACTOR IX HUMAN\COAGULATION FACTOR VII HUMAN\COAGULATION FACTOR X HUMAN\PROTHROMBIN
     Indication: HEADACHE
     Dosage: UNK
     Route: 065
     Dates: start: 20201207, end: 20201213
  7. ACETYLCYSTEINE. [Concomitant]
     Active Substance: ACETYLCYSTEINE
     Dosage: UNK
     Route: 065
     Dates: start: 20201125
  8. NICAMETATE CITRATE [Concomitant]
     Indication: HEADACHE
     Dosage: UNK
     Route: 065
     Dates: start: 20201205
  9. PANCREATIN [Concomitant]
     Active Substance: PANCRELIPASE
     Indication: NAUSEA
     Dosage: UNK
     Route: 065
     Dates: start: 20201202, end: 20201216
  10. ACETYLCYSTEINE. [Concomitant]
     Active Substance: ACETYLCYSTEINE
     Indication: COUGH
     Dosage: UNK
     Route: 065
     Dates: start: 20201125
  11. OPIUM. [Concomitant]
     Active Substance: OPIUM
     Indication: COUGH
     Dosage: UNK
     Route: 065
     Dates: start: 20201125

REACTIONS (1)
  - Pyrexia [Recovered/Resolved]

NARRATIVE: CASE EVENT DATE: 20201204
